FAERS Safety Report 14557567 (Version 1)
Quarter: 2018Q1

REPORT INFORMATION
  Report Type: Other
  Country: US (occurrence: US)
  Receive Date: 20180221
  Receipt Date: 20180221
  Transmission Date: 20180509
  Serious: Yes (Hospitalization)
  Sender: FDA-Public Use
  Company Number: US-ACORDA-ACO_146601_2018

PATIENT
  Sex: Female

DRUGS (1)
  1. AMPYRA [Suspect]
     Active Substance: DALFAMPRIDINE
     Indication: MULTIPLE SCLEROSIS
     Dosage: 10 MG, BID
     Route: 048
     Dates: start: 2010, end: 201801

REACTIONS (6)
  - Fall [Recovering/Resolving]
  - Influenza [Recovering/Resolving]
  - Gait disturbance [Not Recovered/Not Resolved]
  - Joint injury [Recovering/Resolving]
  - Therapy cessation [Not Recovered/Not Resolved]
  - Haematoma [Recovering/Resolving]

NARRATIVE: CASE EVENT DATE: 201801
